FAERS Safety Report 10866578 (Version 4)
Quarter: 2016Q1

REPORT INFORMATION
  Report Type: Spontaneous
  Country: US (occurrence: US)
  Receive Date: 20150225
  Receipt Date: 20160330
  Transmission Date: 20160525
  Serious: Yes (Hospitalization)
  Sender: FDA-Public Use
  Company Number: US-BEH-2015049066

PATIENT
  Age: 56 Year
  Sex: Female
  Weight: 124 kg

DRUGS (26)
  1. CYMBALTA [Concomitant]
     Active Substance: DULOXETINE HYDROCHLORIDE
  2. LAMOTRIGINE. [Concomitant]
     Active Substance: LAMOTRIGINE
  3. VITAMIN D [Concomitant]
     Active Substance: CHOLECALCIFEROL
  4. HIZENTRA [Suspect]
     Active Substance: HUMAN IMMUNOGLOBULIN G
     Indication: IMMUNODEFICIENCY COMMON VARIABLE
     Route: 058
  5. OMEPRAZOLE. [Concomitant]
     Active Substance: OMEPRAZOLE
  6. DIPHENHYDRAMINE. [Concomitant]
     Active Substance: DIPHENHYDRAMINE
  7. BOTOX [Concomitant]
     Active Substance: ONABOTULINUMTOXINA
  8. ACARBOSE. [Concomitant]
     Active Substance: ACARBOSE
  9. NASONEX [Concomitant]
     Active Substance: MOMETASONE FUROATE
  10. NALTREXONE [Concomitant]
     Active Substance: NALTREXONE
  11. NAPROXEN. [Concomitant]
     Active Substance: NAPROXEN
  12. KLOR-CON M20 [Concomitant]
     Active Substance: POTASSIUM CHLORIDE
  13. SINGULAIR [Concomitant]
     Active Substance: MONTELUKAST SODIUM
  14. SEROQUEL [Concomitant]
     Active Substance: QUETIAPINE FUMARATE
  15. OMEGA 3 FISH OIL [Concomitant]
     Active Substance: FISH OIL\OMEGA-3 FATTY ACIDS
  16. HIZENTRA [Suspect]
     Active Substance: HUMAN IMMUNOGLOBULIN G
     Dosage: 4 GM 20 ML VIALS
     Route: 058
     Dates: start: 20140219
  17. AZO CRANBERRY [Concomitant]
  18. CELEBREX [Concomitant]
     Active Substance: CELECOXIB
  19. MULTIVITAMINS WITH MINERALS [Concomitant]
     Active Substance: MINERALS\VITAMINS
  20. CVS VITAMIN B12 [Concomitant]
  21. LIDOCAINE. [Concomitant]
     Active Substance: LIDOCAINE
  22. EPIPEN [Concomitant]
     Active Substance: EPINEPHRINE
  23. GABAPENTIN. [Concomitant]
     Active Substance: GABAPENTIN
  24. SIMVASTATIN. [Concomitant]
     Active Substance: SIMVASTATIN
  25. IRON [Concomitant]
     Active Substance: IRON
  26. VANIQA [Concomitant]
     Active Substance: EFLORNITHINE HYDROCHLORIDE

REACTIONS (8)
  - Generalised tonic-clonic seizure [Unknown]
  - Blood glucose decreased [Unknown]
  - Generalised tonic-clonic seizure [Unknown]
  - Rib fracture [Unknown]
  - Lower limb fracture [Unknown]
  - Lung perforation [Unknown]
  - Blood glucose decreased [Unknown]
  - Fall [Unknown]

NARRATIVE: CASE EVENT DATE: 20160122
